FAERS Safety Report 5562803-X (Version None)
Quarter: 2007Q4

REPORT INFORMATION
  Report Type: 
  Country: None (occurrence: None)
  Receive Date: 20071217
  Receipt Date: 20071206
  Transmission Date: 20080405
  Serious: Yes (Hospitalization, Other)
  Sender: FDA-Public Use
  Company Number: PHMT2007CA02305

PATIENT
  Age: 59 Year
  Sex: Female

DRUGS (1)
  1. CLOZARIL [Suspect]
     Dosage: UNK, UNK
     Dates: start: 20070214, end: 20071015

REACTIONS (7)
  - ACUTE PHASE REACTION [None]
  - C-REACTIVE PROTEIN INCREASED [None]
  - DELUSIONAL DISORDER, UNSPECIFIED TYPE [None]
  - PLATELET COUNT INCREASED [None]
  - PSYCHIATRIC DECOMPENSATION [None]
  - PYREXIA [None]
  - RED BLOOD CELL SEDIMENTATION RATE INCREASED [None]
